FAERS Safety Report 9440387 (Version 1)
Quarter: 2013Q3

REPORT INFORMATION
  Report Type: Spontaneous
  Country: GB (occurrence: GB)
  Receive Date: 20130805
  Receipt Date: 20130805
  Transmission Date: 20140515
  Serious: Yes (Disabling, Other)
  Sender: FDA-Public Use
  Company Number: GB-TEVA-421326ISR

PATIENT
  Age: 24 Year
  Sex: Female
  Weight: 80 kg

DRUGS (2)
  1. NARATRIPTAN [Suspect]
     Indication: MIGRAINE
     Route: 048
     Dates: start: 20130708, end: 20130709
  2. TOPIRAMATE [Suspect]
     Indication: CONVULSION
     Route: 048
     Dates: start: 20130617, end: 20130709

REACTIONS (3)
  - Convulsion [Recovered/Resolved with Sequelae]
  - Condition aggravated [Unknown]
  - Muscular weakness [Recovered/Resolved]
